FAERS Safety Report 13674001 (Version 5)
Quarter: 2018Q4

REPORT INFORMATION
  Report Type: Report from Study
  Country: US (occurrence: US)
  Receive Date: 20170621
  Receipt Date: 20181011
  Transmission Date: 20190204
  Serious: Yes (Death, Hospitalization, Other)
  Sender: FDA-Public Use
  Company Number: US-BRISTOL-MYERS SQUIBB COMPANY-BMS-2017-053693

PATIENT
  Age: 85 Year
  Sex: Female

DRUGS (3)
  1. CEFTRIAXONE. [Concomitant]
     Active Substance: CEFTRIAXONE
     Indication: PRODUCT USED FOR UNKNOWN INDICATION
     Route: 065
  2. PREDNISONE. [Concomitant]
     Active Substance: PREDNISONE
     Indication: PRODUCT USED FOR UNKNOWN INDICATION
     Route: 065
  3. NIVOLUMAB [Suspect]
     Active Substance: NIVOLUMAB
     Indication: METASTATIC MALIGNANT MELANOMA
     Dosage: 240 MG, Q2WK
     Route: 042
     Dates: start: 20170324, end: 20170519

REACTIONS (10)
  - Delirium [Recovered/Resolved with Sequelae]
  - Confusional state [Unknown]
  - Hypoacusis [Unknown]
  - Dizziness [Unknown]
  - Urinary tract infection [Unknown]
  - Malignant neoplasm progression [Fatal]
  - Diarrhoea [Unknown]
  - Substance-induced psychotic disorder [Recovered/Resolved with Sequelae]
  - Hyponatraemia [Unknown]
  - Mental status changes [Unknown]

NARRATIVE: CASE EVENT DATE: 20170611
